FAERS Safety Report 16911024 (Version 1)
Quarter: 2019Q4

REPORT INFORMATION
  Report Type: Spontaneous
  Country: CZ (occurrence: CZ)
  Receive Date: 20191012
  Receipt Date: 20191012
  Transmission Date: 20200122
  Serious: Yes (Other)
  Sender: FDA-Public Use
  Company Number: CZ-ACCORD-157134

PATIENT
  Age: 61 Year
  Sex: Female

DRUGS (2)
  1. VINORELBINE [Suspect]
     Active Substance: VINORELBINE TARTRATE
     Indication: NON-SMALL CELL LUNG CANCER METASTATIC
     Dosage: TOTAL, TWO CHEMOTHERAPY CYCLES
     Dates: start: 201806, end: 201807
  2. CARBOPLATIN. [Suspect]
     Active Substance: CARBOPLATIN
     Indication: NON-SMALL CELL LUNG CANCER METASTATIC
     Dosage: TOTAL, TWO CHEMOTHERAPY CYCLES
     Dates: start: 201806, end: 201807

REACTIONS (3)
  - Nausea [Unknown]
  - Haematotoxicity [Unknown]
  - Vomiting [Unknown]
